FAERS Safety Report 7336282-6 (Version None)
Quarter: 2011Q1

REPORT INFORMATION
  Report Type: 
  Country: None (occurrence: None)
  Receive Date: 20110307
  Receipt Date: 20110217
  Transmission Date: 20110831
  Serious: Yes (Death, Hospitalization, Other)
  Sender: FDA-Public Use
  Company Number: FR-ACTELION-A-CH2011-45834

PATIENT
  Sex: Female

DRUGS (2)
  1. TRACLEER [Suspect]
     Dosage: 62.5 MG, BID
     Route: 048
  2. TRACLEER [Suspect]
     Indication: SKIN ULCER
     Dosage: 125 MG, BID
     Route: 048

REACTIONS (2)
  - CARDIAC FAILURE [None]
  - RESPIRATORY FAILURE [None]
